FAERS Safety Report 4638331-2 (Version None)
Quarter: 2005Q2

REPORT INFORMATION
  Report Type: 
  Country: None (occurrence: None)
  Receive Date: 20050415
  Receipt Date: 20050401
  Transmission Date: 20051028
  Serious: Yes (Death)
  Sender: FDA-Public Use
  Company Number: AZADE200400224

PATIENT
  Age: 74 Year
  Sex: Male
  Weight: 89 kg

DRUGS (5)
  1. AZACITIDINE (AZACITIDINE) INJECTION [Suspect]
     Indication: MYELODYSPLASTIC SYNDROME
     Dosage: 142 MG (75 MG/M2, DAILY X 7 DAYS), SUBCUTANEOUS
     Route: 058
     Dates: start: 20041202, end: 20041208
  2. FOLIC ACID [Concomitant]
  3. TORSEMIDE (TORSEMIDE) [Concomitant]
  4. METOPROLOL TARTRATE [Concomitant]
  5. LOSARTAN (LOSARTAN) [Concomitant]

REACTIONS (3)
  - FEBRILE NEUTROPENIA [None]
  - PNEUMONIA BACTERIAL [None]
  - PNEUMONIA FUNGAL [None]
